FAERS Safety Report 8890577 (Version 2)
Quarter: 2012Q4

REPORT INFORMATION
  Report Type: 
  Country: GB (occurrence: GB)
  Receive Date: 20121106
  Receipt Date: 20121130
  Transmission Date: 20130627
  Serious: Yes (Hospitalization)
  Sender: FDA-Public Use
  Company Number: GB-WATSON-2012-18712

PATIENT
  Age: 75 Year
  Sex: Female

DRUGS (5)
  1. CITALOPRAM [Suspect]
     Indication: ANTIDEPRESSANT THERAPY
     Dosage: UNK, unknown
     Route: 065
  2. TRAMADOL HYDROCHLORIDE (UNKNOWN) [Interacting]
     Indication: ANALGESIC THERAPY
     Dosage: UNK, unknown
     Route: 065
  3. FENTANYL (UNKNOWN) [Suspect]
     Indication: ANALGESIC THERAPY
     Dosage: 150 micrograms single
     Route: 065
  4. ONDANSETRON HYDROCHLORIDE [Suspect]
     Indication: ANTIEMETIC SUPPORTIVE CARE
     Dosage: 4 mg, single
     Route: 065
  5. METHYLENE BLUE [Interacting]
     Indication: IMAGING PROCEDURE
     Dosage: 5.5 mg/kg in 300ml of 0.9% sodium chloride
     Route: 042

REACTIONS (3)
  - Drug interaction [Recovered/Resolved]
  - Serotonin syndrome [Recovered/Resolved]
  - Restless legs syndrome [Recovered/Resolved]
